FAERS Safety Report 18411053 (Version 4)
Quarter: 2021Q3

REPORT INFORMATION
  Report Type: Spontaneous
  Country: US (occurrence: US)
  Receive Date: 20201021
  Receipt Date: 20210906
  Transmission Date: 20211014
  Serious: Yes (Hospitalization, Other)
  Sender: FDA-Public Use
  Company Number: US-PFIZER INC-2020406405

PATIENT
  Age: 55 Year
  Sex: Female

DRUGS (5)
  1. LEVOTHYROXINE. [Concomitant]
     Active Substance: LEVOTHYROXINE
     Dosage: UNK
  2. XELJANZ XR [Suspect]
     Active Substance: TOFACITINIB CITRATE
     Indication: RHEUMATOID ARTHRITIS
     Dosage: 11 MG, 1X/DAY
     Route: 048
     Dates: start: 2018
  3. IRBESARTAN. [Concomitant]
     Active Substance: IRBESARTAN
     Dosage: UNK
  4. ROSUVASTATIN. [Concomitant]
     Active Substance: ROSUVASTATIN
     Dosage: UNK
  5. CARVEDILOL. [Concomitant]
     Active Substance: CARVEDILOL
     Dosage: UNK

REACTIONS (22)
  - Rheumatoid arthritis [Unknown]
  - Condition aggravated [Unknown]
  - Product dose omission issue [Unknown]
  - Aortic valve incompetence [Unknown]
  - Depressed mood [Recovering/Resolving]
  - Dizziness [Unknown]
  - Chest discomfort [Unknown]
  - Therapeutic response unexpected [Unknown]
  - Anxiety [Recovering/Resolving]
  - Atrial fibrillation [Unknown]
  - Intraocular pressure increased [Unknown]
  - Hyperhidrosis [Unknown]
  - Musculoskeletal discomfort [Unknown]
  - Osteoporosis [Not Recovered/Not Resolved]
  - Foot deformity [Not Recovered/Not Resolved]
  - Nausea [Unknown]
  - Chest pain [Unknown]
  - Weight decreased [Unknown]
  - Carotid artery occlusion [Unknown]
  - Pre-existing condition improved [Unknown]
  - Vomiting [Unknown]
  - Discouragement [Unknown]

NARRATIVE: CASE EVENT DATE: 20210723
